FAERS Safety Report 25987930 (Version 1)
Quarter: 2025Q4

REPORT INFORMATION
  Report Type: Spontaneous
  Country: JP (occurrence: None)
  Receive Date: 20251103
  Receipt Date: 20251103
  Transmission Date: 20260117
  Serious: Yes (Death)
  Sender: MERCK SHARP & DOHME LLC
  Company Number: JP-009507513-2345067

PATIENT
  Age: 6 Decade
  Sex: Female

DRUGS (2)
  1. PEMBROLIZUMAB [Suspect]
     Active Substance: PEMBROLIZUMAB
     Indication: Endometrial adenocarcinoma
  2. LENVATINIB [Suspect]
     Active Substance: LENVATINIB
     Indication: Endometrial adenocarcinoma
     Dosage: 10 MG
     Route: 048

REACTIONS (1)
  - Malignant neoplasm progression [Fatal]
